FAERS Safety Report 21177202 (Version 2)
Quarter: 2022Q3

REPORT INFORMATION
  Report Type: Spontaneous
  Country: ES (occurrence: ES)
  Receive Date: 20220805
  Receipt Date: 20220819
  Transmission Date: 20221026
  Serious: Yes (Hospitalization)
  Sender: FDA-Public Use
  Company Number: None

PATIENT
  Age: 83 Year
  Sex: Male

DRUGS (6)
  1. VALACYCLOVIR HYDROCHLORIDE [Suspect]
     Active Substance: VALACYCLOVIR HYDROCHLORIDE
     Indication: Herpes ophthalmic
     Dosage: VALACICLOVIR (2710A), UNIT DOSE :  500MG, FREQUENCY TIME :12 HOURS,  DURATION : 6 DAYS
     Route: 065
     Dates: start: 20220224, end: 20220301
  2. FOSQUEL [Concomitant]
     Indication: Product used for unknown indication
     Dosage: FOSQUEL 2.4 G POWDER FOR ORAL SUSPENSION, 90 SACHETS, UNIT DOSE : 2.4 G, FREQUENCY TIME :8 HOURS
     Dates: start: 20220201
  3. BRIMVERA [Concomitant]
     Indication: Ocular hypertension
     Dosage: BRIMVERA 2 MG/ML EYE DROPS, SOLUTION IN UNIT-DOSE CONTAINER, 30 UNIT-DOSE CONTAINERS OF 0.35 ML, UNI
     Dates: start: 20220201
  4. BIMATOPROST\TIMOLOL [Concomitant]
     Active Substance: BIMATOPROST\TIMOLOL
     Indication: Ocular hypertension
     Dosage: GANFORT 0.3 MG/ML + 5 MG/ML EYE DROPS, SOLUTION IN UNIT-DOSE CONTAINER, 30 UNIT-DOSE CONTAINERS X 0.
     Dates: start: 20220201
  5. FLUTICASONE FUROATE [Concomitant]
     Active Substance: FLUTICASONE FUROATE
     Indication: Product used for unknown indication
     Dosage: AVAMYS 27.5 MCG/SPRAY FOR NASAL SUSPENSION, 1 BOTTLE OF 120 SPRAYS
     Dates: start: 20210701
  6. AZOPT [Concomitant]
     Active Substance: BRINZOLAMIDE
     Indication: Ocular hypertension
     Dosage: AZOPT 10 MG/ML EYE DROPS, SUSPENSION, 1 BOTTLE OF 5 ML, UNIT DOSE : 1 GTT, FREQUENCY TIME : 12 HOURS
     Dates: start: 20220201

REACTIONS (3)
  - Confusional state [Recovered/Resolved]
  - Agitation [Recovered/Resolved]
  - Hallucination, visual [Recovered/Resolved]

NARRATIVE: CASE EVENT DATE: 20220227
